FAERS Safety Report 11323262 (Version 2)
Quarter: 2015Q3

REPORT INFORMATION
  Report Type: Report from Study
  Country: JP (occurrence: JP)
  Receive Date: 20150730
  Receipt Date: 20150908
  Transmission Date: 20151125
  Serious: Yes (Hospitalization)
  Sender: FDA-Public Use
  Company Number: JP-TAKEDA-TCI2012A07483

PATIENT
  Age: 69 Year
  Sex: Male
  Weight: 72 kg

DRUGS (20)
  1. BLOPRESS [Concomitant]
     Active Substance: CANDESARTAN CILEXETIL
     Dosage: 4 MG, UNK
     Route: 048
     Dates: start: 20120920, end: 20120920
  2. LOXONIN [Concomitant]
     Active Substance: LOXOPROFEN SODIUM
     Dosage: 120 MG, UNK
     Route: 048
     Dates: end: 20120522
  3. STROCAIN [Concomitant]
     Active Substance: OXETHAZAINE
     Dosage: 15 MG, UNK
     Route: 048
     Dates: start: 20140509, end: 20140811
  4. ALOGLIPTIN [Suspect]
     Active Substance: ALOGLIPTIN
     Indication: TYPE 2 DIABETES MELLITUS
     Dosage: 25 MG, QD
     Route: 048
     Dates: start: 20110927
  5. ADETPHOS [Concomitant]
     Active Substance: ADENOSINE TRIPHOSPHATE
     Dosage: 300 MG, UNK
     Route: 048
     Dates: end: 20111024
  6. PARIET [Concomitant]
     Active Substance: RABEPRAZOLE SODIUM
     Dosage: 10 MG, UNK
     Route: 048
     Dates: start: 20130620, end: 20130724
  7. SELBEX [Concomitant]
     Active Substance: TEPRENONE
     Indication: GASTRIC ULCER
     Dosage: 150 MG, UNK
     Route: 048
     Dates: start: 20120522, end: 20120615
  8. NORVASC [Concomitant]
     Active Substance: AMLODIPINE BESYLATE
     Dosage: 5 MG, UNK
     Route: 048
     Dates: start: 20140324
  9. PARIET [Concomitant]
     Active Substance: RABEPRAZOLE SODIUM
     Indication: GASTRIC ULCER
     Dosage: 10 MG, UNK
     Route: 048
     Dates: start: 20120528, end: 20120920
  10. STROCAIN [Concomitant]
     Active Substance: OXETHAZAINE
     Indication: GASTRIC ULCER
     Dosage: 15 MG, UNK
     Route: 048
     Dates: start: 20120522, end: 20120615
  11. SOLCOSERYL [Concomitant]
     Active Substance: SOLCOSERYL
     Dosage: 4 ML, UNK
     Route: 050
     Dates: start: 20140707, end: 20140927
  12. FERROMIA [Concomitant]
     Active Substance: FERROUS CITRATE
     Indication: IRON DEFICIENCY ANAEMIA
     Dosage: 100 MG, UNK
     Route: 048
     Dates: start: 20120615, end: 20120629
  13. BLOPRESS [Concomitant]
     Active Substance: CANDESARTAN CILEXETIL
     Dosage: 8 MG, UNK
     Route: 048
     Dates: start: 20121001
  14. LOXONIN [Concomitant]
     Active Substance: LOXOPROFEN SODIUM
     Dosage: 120 MG, UNK
     Route: 048
     Dates: start: 20130724, end: 20131004
  15. SELBEX [Concomitant]
     Active Substance: TEPRENONE
     Dosage: 150 MG, UNK
     Route: 048
     Dates: start: 20130620, end: 20131209
  16. GLYCORAN [Concomitant]
     Active Substance: GLYCERIN
     Indication: TYPE 2 DIABETES MELLITUS
     Dosage: 250 MG, UNK
     Route: 048
     Dates: start: 20130326
  17. MUCOSTA [Concomitant]
     Active Substance: REBAMIPIDE
     Dosage: 300 MG, UNK
     Route: 048
     Dates: start: 20140509, end: 20140811
  18. MEILAX [Concomitant]
     Active Substance: ETHYL LOFLAZEPATE
     Indication: INSOMNIA
     Dosage: 1 MG, UNK
     Route: 048
     Dates: end: 20120615
  19. NEXIUM [Concomitant]
     Active Substance: ESOMEPRAZOLE MAGNESIUM
     Dosage: 10 MG, UNK
     Route: 048
     Dates: start: 20140707, end: 20140811
  20. PROTECADIN [Concomitant]
     Active Substance: LAFUTIDINE
     Dosage: 10 MG, UNK
     Route: 048
     Dates: start: 20140821

REACTIONS (2)
  - Constipation [Not Recovered/Not Resolved]
  - Road traffic accident [Recovered/Resolved]

NARRATIVE: CASE EVENT DATE: 20121004
